FAERS Safety Report 5564799-3 (Version None)
Quarter: 2007Q4

REPORT INFORMATION
  Report Type: 
  Country: None (occurrence: None)
  Receive Date: 20071218
  Receipt Date: 20071207
  Transmission Date: 20080405
  Serious: Yes (Hospitalization)
  Sender: FDA-Public Use
  Company Number: FR-JNJFOC-20071103870

PATIENT
  Sex: Male

DRUGS (7)
  1. DURAGESIC-100 [Suspect]
     Route: 062
  2. DURAGESIC-100 [Suspect]
     Indication: PAIN
     Route: 062
  3. LIORESAL [Suspect]
     Indication: PAIN
     Route: 048
  4. SEVREDOL [Suspect]
     Route: 048
  5. SEVREDOL [Suspect]
     Indication: PAIN
     Route: 048
  6. RIVOTRIL [Concomitant]
     Indication: STATUS EPILEPTICUS
     Route: 048
  7. BACLOFENE [Concomitant]
     Indication: PAIN IN EXTREMITY
     Route: 048

REACTIONS (5)
  - ABDOMINAL PAIN [None]
  - CHILLS [None]
  - DIARRHOEA [None]
  - PRURITUS [None]
  - SWEAT GLAND DISORDER [None]
